FAERS Safety Report 5147641-4 (Version None)
Quarter: 2006Q4

REPORT INFORMATION
  Report Type: 
  Country: None (occurrence: None)
  Receive Date: 20061108
  Receipt Date: 20061108
  Transmission Date: 20070319
  Serious: Yes (Hospitalization)
  Sender: FDA-Public Use
  Company Number: None

PATIENT
  Age: 80 Year
  Sex: Female

DRUGS (1)
  1. ADENOSINE [Suspect]

REACTIONS (4)
  - DYSPNOEA [None]
  - FLUSHING [None]
  - HYPERTENSION [None]
  - TACHYCARDIA [None]
